FAERS Safety Report 13541173 (Version 2)
Quarter: 2017Q3

REPORT INFORMATION
  Report Type: Spontaneous
  Country: BR (occurrence: BR)
  Receive Date: 20170512
  Receipt Date: 20170803
  Transmission Date: 20171127
  Serious: Yes (Life-Threatening, Other)
  Sender: FDA-Public Use
  Company Number: PHHY2017BR066280

PATIENT
  Sex: Female
  Weight: 59 kg

DRUGS (3)
  1. FORASEQ [Suspect]
     Active Substance: BUDESONIDE\FORMOTEROL FUMARATE
     Indication: ASTHMA
     Dosage: UNK UNK, Q12H (60 PLUS 60 CAPSULES)
     Route: 055
  2. FORASEQ [Suspect]
     Active Substance: BUDESONIDE\FORMOTEROL FUMARATE
     Dosage: UNK
     Route: 055
     Dates: start: 20170405
  3. ARADOIS [Concomitant]
     Active Substance: LOSARTAN POTASSIUM
     Indication: HYPERTENSION
     Dosage: 2 DF, UNK (OVER 20 YEARS)
     Route: 065

REACTIONS (7)
  - Pyrexia [Unknown]
  - Sinusitis [Unknown]
  - Dyspnoea [Unknown]
  - Cough [Unknown]
  - Feeling abnormal [Unknown]
  - Bronchitis [Recovered/Resolved]
  - Wrong technique in product usage process [Unknown]
